FAERS Safety Report 9187313 (Version 1)
Quarter: 2013Q1

REPORT INFORMATION
  Report Type: Report from Study
  Country: CA (occurrence: CA)
  Receive Date: 20130325
  Receipt Date: 20130325
  Transmission Date: 20140127
  Serious: Yes (Other)
  Sender: FDA-Public Use
  Company Number: CA-JNJFOC-20130309475

PATIENT
  Sex: Male
  Weight: 97.5 kg

DRUGS (3)
  1. REMICADE [Suspect]
     Indication: COLITIS ULCERATIVE
     Route: 042
     Dates: start: 201202
  2. IMURAN [Concomitant]
     Route: 065
  3. VITAMINS NOS [Concomitant]
     Route: 065

REACTIONS (1)
  - Hand fracture [Unknown]
